FAERS Safety Report 10216470 (Version 1)
Quarter: 2014Q2

REPORT INFORMATION
  Report Type: Spontaneous
  Country: NZ (occurrence: NZ)
  Receive Date: 20140604
  Receipt Date: 20140604
  Transmission Date: 20141212
  Serious: Yes (Other)
  Sender: FDA-Public Use
  Company Number: NZ-ACTAVIS-2014-11913

PATIENT
  Age: 23 Year
  Sex: Male

DRUGS (3)
  1. RISPERIDONE (UNKNOWN) [Suspect]
     Indication: SCHIZOPHRENIA
     Dosage: 5 MG, DAILY
     Route: 048
  2. RISPERIDONE (UNKNOWN) [Suspect]
     Dosage: 50 MG, UNKNOWN
     Route: 030
  3. RISPERIDONE (UNKNOWN) [Suspect]
     Dosage: 3 MG, DAILY
     Route: 048

REACTIONS (1)
  - Hypersexuality [Recovered/Resolved]
